FAERS Safety Report 24550064 (Version 3)
Quarter: 2025Q1

REPORT INFORMATION
  Report Type: Report from Study
  Country: GR (occurrence: GR)
  Receive Date: 20241025
  Receipt Date: 20250117
  Transmission Date: 20250409
  Serious: Yes (Hospitalization)
  Sender: BAYER HEALTHCARE PHARMACEUTICALS INC.
  Company Number: GR-BAYER-2024A153259

PATIENT
  Age: 71 Year
  Sex: Female
  Weight: 64.5 kg

DRUGS (11)
  1. FINERENONE [Suspect]
     Active Substance: FINERENONE
     Indication: Type 2 diabetes mellitus
     Dosage: 10 MG, QD
     Dates: start: 20240807, end: 20240909
  2. FINERENONE [Suspect]
     Active Substance: FINERENONE
     Indication: Chronic kidney disease
     Dosage: 20 MG, QD
     Dates: start: 20240910, end: 20241010
  3. FINERENONE [Suspect]
     Active Substance: FINERENONE
     Indication: Type 2 diabetes mellitus
     Dates: start: 20241011, end: 20241104
  4. FINERENONE [Suspect]
     Active Substance: FINERENONE
     Indication: Type 2 diabetes mellitus
     Dosage: 10 MG, QD
     Dates: start: 20241105
  5. LINAGLIPTIN [Concomitant]
     Active Substance: LINAGLIPTIN
     Indication: Chronic kidney disease
     Dates: start: 20240101
  6. DAPAGLIFLOZIN [Concomitant]
     Active Substance: DAPAGLIFLOZIN
     Indication: Chronic kidney disease
     Dates: start: 202305
  7. LEVOTHYROXINE [Concomitant]
     Active Substance: LEVOTHYROXINE
  8. DIAMICRON [Concomitant]
     Indication: Type 2 diabetes mellitus
  9. ATROSTEROL [Concomitant]
  10. CANDESARTAN CILEXETIL\HYDROCHLOROTHIAZIDE [Concomitant]
     Active Substance: CANDESARTAN CILEXETIL\HYDROCHLOROTHIAZIDE
     Indication: Chronic kidney disease
     Dates: end: 20240925
  11. ATACAND [Concomitant]
     Active Substance: CANDESARTAN CILEXETIL
     Indication: Chronic kidney disease
     Dates: start: 20241106

REACTIONS (1)
  - Hyperkalaemia [Not Recovered/Not Resolved]

NARRATIVE: CASE EVENT DATE: 20240925
